FAERS Safety Report 7299958-5 (Version None)
Quarter: 2011Q1

REPORT INFORMATION
  Report Type: 
  Country: None (occurrence: None)
  Receive Date: 20110208
  Receipt Date: 20110124
  Transmission Date: 20110831
  Serious: Yes (Other)
  Sender: FDA-Public Use
  Company Number: 2011-00121

PATIENT
  Age: 37 Year
  Sex: Male
  Weight: 74.8435 kg

DRUGS (1)
  1. SUPRAX [Suspect]
     Indication: UPPER RESPIRATORY TRACT INFECTION
     Dosage: 800 MG (400 MG, 2 IN 1 D), PER ORAL
     Route: 048
     Dates: start: 20110117, end: 20110119

REACTIONS (5)
  - DIARRHOEA [None]
  - COLITIS [None]
  - ABDOMINAL PAIN [None]
  - RECTAL HAEMORRHAGE [None]
  - MUCOUS STOOLS [None]
